FAERS Safety Report 8619468-X (Version None)
Quarter: 2012Q3

REPORT INFORMATION
  Report Type: 
  Country: None (occurrence: None)
  Receive Date: 20120824
  Receipt Date: 20120810
  Transmission Date: 20120928
  Serious: Yes (Other)
  Sender: FDA-Public Use
  Company Number: JP-VERTEX PHARMACEUTICAL INC.-AE-2012-010248

PATIENT
  Age: 71 Year
  Sex: Female

DRUGS (7)
  1. VX-950 [Suspect]
     Indication: HEPATITIS C
     Dosage: 1500 MG, QD
     Route: 048
     Dates: start: 20120508, end: 20120730
  2. PEGINTERFERON ALFA-2B [Concomitant]
     Indication: HEPATITIS C
     Route: 058
     Dates: start: 20120508, end: 20120528
  3. RIBAVIRIN [Concomitant]
     Indication: HEPATITIS C
     Dosage: 600 MG, QD
     Route: 048
     Dates: start: 20120508, end: 20120618
  4. PEGINTERFERON ALFA-2B [Concomitant]
     Dosage: 1.3 A?G/KG, UNK
     Route: 058
     Dates: start: 20120529
  5. RIBAVIRIN [Concomitant]
     Dosage: 400 MG, QD
     Route: 048
     Dates: start: 20120619, end: 20120716
  6. RIBAVIRIN [Concomitant]
     Dosage: 200 MG, QD
     Dates: start: 20120717
  7. PENTASA [Concomitant]
     Dosage: 1500 MG, QD
     Route: 048

REACTIONS (4)
  - ANAEMIA [None]
  - RENAL IMPAIRMENT [None]
  - HYPERURICAEMIA [None]
  - RASH [None]
